FAERS Safety Report 7939406-2 (Version None)
Quarter: 2011Q4

REPORT INFORMATION
  Report Type: 
  Country: None (occurrence: None)
  Receive Date: 20111125
  Receipt Date: 20111115
  Transmission Date: 20120403
  Serious: Yes (Other)
  Sender: FDA-Public Use
  Company Number: US-ROCHE-791826

PATIENT
  Sex: Male
  Weight: 136.2 kg

DRUGS (3)
  1. ACCUTANE [Suspect]
     Route: 048
     Dates: start: 19990101, end: 19990301
  2. ACCUTANE [Suspect]
     Indication: ACNE
     Route: 048
     Dates: start: 19980101, end: 19980601
  3. ACCUTANE [Suspect]
     Route: 048

REACTIONS (3)
  - COLITIS ULCERATIVE [None]
  - INFLAMMATORY BOWEL DISEASE [None]
  - ANAL FISSURE [None]
